FAERS Safety Report 4999590-X (Version None)
Quarter: 2006Q2

REPORT INFORMATION
  Report Type: 
  Country: None (occurrence: None)
  Receive Date: 20060511
  Receipt Date: 20060504
  Transmission Date: 20061013
  Serious: Yes (Other)
  Sender: FDA-Public Use
  Company Number: US-JNJFOC-20060501252

PATIENT
  Sex: Female
  Weight: 78.02 kg

DRUGS (18)
  1. REMICADE [Suspect]
     Indication: RHEUMATOID ARTHRITIS
     Route: 042
  2. SULFASALAZINE [Concomitant]
  3. FOLIC ACID [Concomitant]
  4. LEVOTHROXINE [Concomitant]
  5. METHOTREXATE [Concomitant]
  6. EYEVITE [Concomitant]
  7. EYEVITE [Concomitant]
  8. MULTI-VITAMIN [Concomitant]
  9. MULTI-VITAMIN [Concomitant]
  10. MULTI-VITAMIN [Concomitant]
  11. MULTI-VITAMIN [Concomitant]
  12. MULTI-VITAMIN [Concomitant]
  13. MULTI-VITAMIN [Concomitant]
  14. MULTI-VITAMIN [Concomitant]
  15. MULTI-VITAMIN [Concomitant]
  16. CALCIUM+D [Concomitant]
  17. CALCIUM+D [Concomitant]
  18. UNSPECIFIED ARTHRITIS MEDICATION [Concomitant]

REACTIONS (1)
  - BASAL CELL CARCINOMA [None]
